FAERS Safety Report 19183479 (Version 4)
Quarter: 2022Q2

REPORT INFORMATION
  Report Type: Spontaneous
  Country: GB (occurrence: GB)
  Receive Date: 20210427
  Receipt Date: 20220416
  Transmission Date: 20220721
  Serious: Yes (Hospitalization, Disabling, Other)
  Sender: FDA-Public Use
  Company Number: GB-AUROBINDO-AUR-APL-2010-01331

PATIENT
  Age: 70 Year
  Sex: Male

DRUGS (20)
  1. CIPROFLOXACIN [Interacting]
     Active Substance: CIPROFLOXACIN
     Indication: Chalazion
     Dosage: 750 MILLIGRAM, TWO TIMES A DAY
     Route: 048
  2. CIPROFLOXACIN [Interacting]
     Active Substance: CIPROFLOXACIN
     Indication: Antibiotic therapy
  3. CLOPIDOGREL [Interacting]
     Active Substance: CLOPIDOGREL BISULFATE
     Indication: Chest pain
     Dosage: UNK UNK, ONCE A DAY
     Route: 065
  4. CLOPIDOGREL [Interacting]
     Active Substance: CLOPIDOGREL BISULFATE
     Dosage: 300 MILLIGRAM, ONCE A DAY
     Route: 048
  5. CLOPIDOGREL [Interacting]
     Active Substance: CLOPIDOGREL BISULFATE
     Dosage: 75 MILLIGRAM, ONCE A DAY
     Route: 048
  6. ERYTHROMYCIN [Interacting]
     Active Substance: ERYTHROMYCIN
     Indication: Cellulitis
     Dosage: 250 MILLIGRAM, FOUR TIMES/DAY(1000 MILLIGRAM, ONCE A DAY)
     Route: 048
  7. ERYTHROMYCIN [Interacting]
     Active Substance: ERYTHROMYCIN
     Indication: Antibiotic therapy
  8. METRONIDAZOLE [Interacting]
     Active Substance: METRONIDAZOLE
     Indication: Chalazion
     Dosage: 400 MILLIGRAM, 3 TIMES A DAY
     Route: 048
  9. METRONIDAZOLE [Interacting]
     Active Substance: METRONIDAZOLE
     Indication: Antibiotic therapy
     Dosage: 1000 MILLIGRAM, ONCE A DAY
     Route: 048
  10. MEROPENEM [Interacting]
     Active Substance: MEROPENEM
     Indication: Cellulitis
     Dosage: 2 GRAM, TWO TIMES A DAY
     Route: 042
  11. MEROPENEM [Interacting]
     Active Substance: MEROPENEM
     Dosage: 4 GRAM, ONCE A DAY
     Route: 030
  12. MEROPENEM [Interacting]
     Active Substance: MEROPENEM
     Dosage: 2 GRAM, TWO TIMES A DAY
     Route: 051
  13. ASPIRIN [Interacting]
     Active Substance: ASPIRIN
     Indication: Chest pain
     Dosage: ONCE A DAY
     Route: 065
  14. ASPIRIN [Interacting]
     Active Substance: ASPIRIN
     Indication: Antiplatelet therapy
     Dosage: 300 MILLIGRAM, ONCE A DAY
     Route: 065
  15. ASPIRIN [Interacting]
     Active Substance: ASPIRIN
     Dosage: 75 MILLIGRAM, ONCE A DAY
     Route: 065
  16. TEICOPLANIN [Interacting]
     Active Substance: TEICOPLANIN
     Indication: Antibiotic therapy
     Dosage: 400 MILLIGRAM, ONCE A DAY
     Route: 030
  17. TEICOPLANIN [Interacting]
     Active Substance: TEICOPLANIN
     Indication: Cellulitis
  18. WARFARIN [Interacting]
     Active Substance: WARFARIN
     Indication: Pulmonary embolism
     Dosage: UNK
     Route: 065
  19. WARFARIN [Interacting]
     Active Substance: WARFARIN
     Indication: Factor V deficiency
  20. VITAMIN K [Concomitant]
     Active Substance: PHYTONADIONE
     Indication: Hyphaema
     Dosage: UNK
     Route: 065

REACTIONS (14)
  - Hyphaema [Recovered/Resolved with Sequelae]
  - International normalised ratio increased [Recovered/Resolved]
  - Drug interaction [Recovered/Resolved with Sequelae]
  - Intraocular pressure increased [Not Recovered/Not Resolved]
  - Decreased appetite [Unknown]
  - Eye pain [Recovered/Resolved with Sequelae]
  - Pyrexia [Unknown]
  - Headache [Unknown]
  - Nausea [Unknown]
  - Coagulation time prolonged [Recovered/Resolved]
  - Potentiating drug interaction [Recovered/Resolved with Sequelae]
  - Visual impairment [Unknown]
  - Visual acuity reduced [Unknown]
  - Off label use [Unknown]
